FAERS Safety Report 5301097-7 (Version None)
Quarter: 2007Q2

REPORT INFORMATION
  Report Type: 
  Country: None (occurrence: None)
  Receive Date: 20070418
  Receipt Date: 20070411
  Transmission Date: 20071010
  Serious: Yes (Hospitalization)
  Sender: FDA-Public Use
  Company Number: FR-ROXANE LABORATORIES, INC-2007-BP-05056RO

PATIENT
  Age: 44 Year
  Sex: Male

DRUGS (4)
  1. METHADONE HCL [Suspect]
     Indication: INTENTIONAL OVERDOSE
     Dosage: 240 MG X 1 DOSE
     Route: 048
  2. METHADONE HCL [Suspect]
     Indication: DRUG WITHDRAWAL MAINTENANCE THERAPY
     Route: 048
  3. FLUNITRAZEPAM [Suspect]
     Indication: FEELING OF RELAXATION
     Dosage: 2 MG X 1 DOSE
     Route: 048
  4. NEO-MERCAZOLE TAB [Concomitant]
     Indication: HYPERTHYROIDISM

REACTIONS (4)
  - COMA [None]
  - MIOSIS [None]
  - PNEUMONIA ASPIRATION [None]
  - RESPIRATORY DEPRESSION [None]
